FAERS Safety Report 9393881 (Version 1)
Quarter: 2013Q3

REPORT INFORMATION
  Report Type: Spontaneous
  Country: NL (occurrence: NL)
  Receive Date: 20130710
  Receipt Date: 20130710
  Transmission Date: 20140515
  Serious: Yes (Hospitalization, Other)
  Sender: FDA-Public Use
  Company Number: NL-BAXTER-2013BAX024405

PATIENT
  Age: 53 Year
  Sex: Male
  Weight: 131 kg

DRUGS (2)
  1. EXTRANEAL [Suspect]
     Indication: PERITONEAL DIALYSIS
     Route: 033
  2. EXTRANEAL [Suspect]
     Indication: PERITONEAL DIALYSIS

REACTIONS (5)
  - Noninfectious peritonitis [Recovered/Resolved]
  - Diverticulitis [Recovered/Resolved]
  - Flank pain [Recovered/Resolved]
  - Traumatic haematoma [Recovered/Resolved]
  - Fall [Recovered/Resolved]
